FAERS Safety Report 17745086 (Version 12)
Quarter: 2025Q2

REPORT INFORMATION
  Report Type: Report from Study
  Country: US (occurrence: US)
  Receive Date: 20200504
  Receipt Date: 20250607
  Transmission Date: 20250716
  Serious: Yes (Hospitalization, Other)
  Sender: TAKEDA
  Company Number: US-TAKEDA-2020TUS020855

PATIENT
  Age: 70 Year
  Sex: Female

DRUGS (24)
  1. IXAZOMIB [Suspect]
     Active Substance: IXAZOMIB
     Indication: Plasma cell myeloma
  2. IXAZOMIB [Suspect]
     Active Substance: IXAZOMIB
     Indication: Plasma cell myeloma in remission
  3. IXAZOMIB [Suspect]
     Active Substance: IXAZOMIB
  4. IXAZOMIB [Suspect]
     Active Substance: IXAZOMIB
  5. IXAZOMIB [Suspect]
     Active Substance: IXAZOMIB
  6. IXAZOMIB [Suspect]
     Active Substance: IXAZOMIB
  7. IXAZOMIB [Suspect]
     Active Substance: IXAZOMIB
  8. IXAZOMIB [Suspect]
     Active Substance: IXAZOMIB
     Dosage: 4 MILLIGRAM, 1/WEEK
     Dates: start: 202201
  9. IXAZOMIB [Suspect]
     Active Substance: IXAZOMIB
  10. POMALYST [Suspect]
     Active Substance: POMALIDOMIDE
     Indication: Plasma cell myeloma
  11. POMALYST [Suspect]
     Active Substance: POMALIDOMIDE
  12. POMALYST [Suspect]
     Active Substance: POMALIDOMIDE
  13. POMALYST [Suspect]
     Active Substance: POMALIDOMIDE
     Dosage: UNK, QD
  14. REVLIMID [Concomitant]
     Active Substance: LENALIDOMIDE
  15. ALEVE [Concomitant]
     Active Substance: NAPROXEN SODIUM
  16. DEXAMETHASONE [Concomitant]
     Active Substance: DEXAMETHASONE
  17. LOSARTAN [Concomitant]
     Active Substance: LOSARTAN
  18. VALACYCLOVIR [Concomitant]
     Active Substance: VALACYCLOVIR HYDROCHLORIDE
  19. VITAMIN B12 [Concomitant]
     Active Substance: CYANOCOBALAMIN
  20. CYANOCOBALAMIN [Concomitant]
     Active Substance: CYANOCOBALAMIN
  21. Triamcinolon [Concomitant]
  22. ALLEGRA [Concomitant]
     Active Substance: FEXOFENADINE HYDROCHLORIDE
  23. FLUTICASONE [Concomitant]
     Active Substance: FLUTICASONE
  24. MELOXICAM [Concomitant]
     Active Substance: MELOXICAM

REACTIONS (24)
  - Deafness [Unknown]
  - Coma [Unknown]
  - Peripheral swelling [Unknown]
  - Neuropathy peripheral [Unknown]
  - Gastrointestinal disorder [Unknown]
  - Rash vesicular [Unknown]
  - Product dose omission issue [Unknown]
  - Off label use [Unknown]
  - Swelling face [Unknown]
  - Joint swelling [Unknown]
  - Sinusitis [Unknown]
  - Dry mouth [Unknown]
  - Skin disorder [Not Recovered/Not Resolved]
  - Chills [Unknown]
  - Paraesthesia [Unknown]
  - Arthritis [Unknown]
  - Pain of skin [Not Recovered/Not Resolved]
  - Arthralgia [Unknown]
  - Pain in extremity [Unknown]
  - Fatigue [Unknown]
  - Vision blurred [Unknown]
  - Rash [Unknown]
  - Diarrhoea [Unknown]
  - Nausea [Unknown]

NARRATIVE: CASE EVENT DATE: 20210628
